FAERS Safety Report 16541087 (Version 1)
Quarter: 2019Q3

REPORT INFORMATION
  Report Type: Spontaneous
  Country: SE (occurrence: SE)
  Receive Date: 20190708
  Receipt Date: 20190708
  Transmission Date: 20191004
  Serious: Yes (Other)
  Sender: FDA-Public Use
  Company Number: SE-MYLANLABS-2019M1062081

PATIENT
  Age: 59 Year
  Sex: Female
  Weight: 56.1 kg

DRUGS (4)
  1. FOLIC ACID. [Concomitant]
     Active Substance: FOLIC ACID
     Dosage: UNK
  2. THERALENE [Concomitant]
     Active Substance: TRIMEPRAZINE
     Dosage: 1 TABL. MORGON+LUNCH. 2 TABL. TILL NATTEN.
  3. CIPROFLOXACIN. [Suspect]
     Active Substance: CIPROFLOXACIN
     Indication: PRODUCT USED FOR UNKNOWN INDICATION
     Dosage: UNK
     Dates: start: 20190106, end: 20190108
  4. PARACETAMOL [Concomitant]
     Active Substance: ACETAMINOPHEN
     Dosage: 4000 MILLIGRAM, QD

REACTIONS (8)
  - Suicidal ideation [Unknown]
  - Anger [Unknown]
  - Chest discomfort [Unknown]
  - Dizziness [Unknown]
  - Paraesthesia [Unknown]
  - Fear of death [Unknown]
  - Non-cardiac chest pain [Unknown]
  - Mental disorder [Unknown]

NARRATIVE: CASE EVENT DATE: 201901
